FAERS Safety Report 4854172-5 (Version None)
Quarter: 2005Q4

REPORT INFORMATION
  Report Type: 
  Country: None (occurrence: None)
  Receive Date: 20051213
  Receipt Date: 20051128
  Transmission Date: 20060501
  Serious: Yes (Disabling)
  Sender: FDA-Public Use
  Company Number: 2005165014

PATIENT

DRUGS (1)
  1. GABAPENTIN [Suspect]
     Indication: ILL-DEFINED DISORDER
     Dosage: 3600 MG (1 D)

REACTIONS (1)
  - ASTERIXIS [None]
